FAERS Safety Report 19589914 (Version 1)
Quarter: 2021Q3

REPORT INFORMATION
  Report Type: Spontaneous
  Country: SA (occurrence: SA)
  Receive Date: 20210721
  Receipt Date: 20210721
  Transmission Date: 20211014
  Serious: Yes (Other)
  Sender: FDA-Public Use
  Company Number: SA-AMGEN-SAUSP2021107703

PATIENT

DRUGS (2)
  1. FILGRASTIM [Suspect]
     Active Substance: FILGRASTIM
     Indication: PROPHYLAXIS
     Dosage: UNK
     Route: 065
  2. DOXORUBICIN [Concomitant]
     Active Substance: DOXORUBICIN
     Route: 065

REACTIONS (7)
  - Tachyarrhythmia [Unknown]
  - Bundle branch block [Unknown]
  - Ejection fraction decreased [Unknown]
  - Bradycardia [Unknown]
  - Sinus tachycardia [Unknown]
  - Cardiotoxicity [Unknown]
  - Cardiac failure [Unknown]
